FAERS Safety Report 13345969 (Version 1)
Quarter: 2017Q1

REPORT INFORMATION
  Report Type: Spontaneous
  Country: IT (occurrence: IT)
  Receive Date: 20170317
  Receipt Date: 20170317
  Transmission Date: 20170428
  Serious: Yes (Hospitalization)
  Sender: FDA-Public Use
  Company Number: IT-PIERREL PHARMA S.P.A.-2017PIR00008

PATIENT
  Sex: Female

DRUGS (1)
  1. ARTICAINE 4% WITH ADRENALINE 1:100,000 [Suspect]
     Active Substance: ARTICAINE\EPINEPHRINE
     Indication: ANAESTHESIA
     Route: 004

REACTIONS (3)
  - Drug hypersensitivity [Unknown]
  - Pulpitis dental [Unknown]
  - Toothache [Unknown]
